FAERS Safety Report 25289752 (Version 1)
Quarter: 2025Q2

REPORT INFORMATION
  Report Type: Spontaneous
  Country: US (occurrence: US)
  Receive Date: 20250509
  Receipt Date: 20250509
  Transmission Date: 20250717
  Serious: Yes (Other)
  Sender: BAUSCH AND LOMB
  Company Number: US-BAUSCH-BL-2025-005958

PATIENT
  Sex: Female

DRUGS (2)
  1. ATIVAN [Suspect]
     Active Substance: LORAZEPAM
     Indication: Sleep disorder
     Route: 065
  2. ATIVAN [Suspect]
     Active Substance: LORAZEPAM
     Indication: Off label use

REACTIONS (15)
  - Drug dependence [Unknown]
  - Suicidal ideation [Recovered/Resolved]
  - Drug abuse [Unknown]
  - Mental disorder [Unknown]
  - Social problem [Not Recovered/Not Resolved]
  - Flat affect [Not Recovered/Not Resolved]
  - Impaired work ability [Not Recovered/Not Resolved]
  - Energy increased [Unknown]
  - Drug tolerance [Unknown]
  - Anxiety [Unknown]
  - Withdrawal syndrome [Not Recovered/Not Resolved]
  - Prescription drug used without a prescription [Unknown]
  - Intentional product misuse [Unknown]
  - Product communication issue [Unknown]
  - Product use in unapproved indication [Unknown]
